FAERS Safety Report 10143423 (Version 2)
Quarter: 2014Q2

REPORT INFORMATION
  Report Type: Spontaneous
  Country: BR (occurrence: BR)
  Receive Date: 20140430
  Receipt Date: 20140522
  Transmission Date: 20141212
  Serious: Yes (Other)
  Sender: FDA-Public Use
  Company Number: BR-JNJFOC-20140412857

PATIENT
  Sex: Female
  Weight: 90 kg

DRUGS (6)
  1. TYLEX [Suspect]
     Indication: ANALGESIC THERAPY
     Route: 065
     Dates: start: 1994
  2. PACO (ACETAMINOPHEN AND CODEINE) [Concomitant]
     Indication: PRODUCT USED FOR UNKNOWN INDICATION
     Route: 065
  3. ASPIRINA [Concomitant]
     Indication: PRODUCT USED FOR UNKNOWN INDICATION
     Route: 065
  4. HIDROMED [Concomitant]
     Indication: DIURETIC THERAPY
     Route: 065
  5. FUROSEMIDE [Concomitant]
     Indication: DIURETIC THERAPY
     Route: 065
  6. DESALEX [Concomitant]
     Indication: RHINITIS ALLERGIC
     Route: 065

REACTIONS (15)
  - Spinal operation [Unknown]
  - Right atrial dilatation [Not Recovered/Not Resolved]
  - Hypertension [Not Recovered/Not Resolved]
  - Anaemia [Not Recovered/Not Resolved]
  - Glaucoma [Not Recovered/Not Resolved]
  - Diabetes mellitus [Not Recovered/Not Resolved]
  - Labyrinthitis [Not Recovered/Not Resolved]
  - Weight decreased [Not Recovered/Not Resolved]
  - Protein deficiency [Not Recovered/Not Resolved]
  - Blood pressure decreased [Not Recovered/Not Resolved]
  - Discomfort [Not Recovered/Not Resolved]
  - Medication error [Not Recovered/Not Resolved]
  - Constipation [Not Recovered/Not Resolved]
  - Hypoglycaemia [Unknown]
  - Headache [Not Recovered/Not Resolved]
